FAERS Safety Report 5760871-3 (Version None)
Quarter: 2008Q2

REPORT INFORMATION
  Report Type: 
  Country: None (occurrence: None)
  Receive Date: 20080606
  Receipt Date: 20080530
  Transmission Date: 20081010
  Serious: Yes (Other)
  Sender: FDA-Public Use
  Company Number: KR-TYCO HEALTHCARE/MALLINCKRODT-T200800885

PATIENT
  Age: 53 Year
  Sex: Female

DRUGS (1)
  1. OPTIRAY 300 [Suspect]
     Indication: COMPUTERISED TOMOGRAM THORAX
     Dosage: 100 ML, SINGLE
     Route: 042
     Dates: start: 20080521, end: 20080521

REACTIONS (1)
  - LOSS OF CONSCIOUSNESS [None]
